FAERS Safety Report 7890181-X (Version None)
Quarter: 2011Q4

REPORT INFORMATION
  Report Type: 
  Country: None (occurrence: None)
  Receive Date: 20111103
  Receipt Date: 20111026
  Transmission Date: 20120403
  Serious: No
  Sender: FDA-Public Use
  Company Number: US-RB-032992-11

PATIENT
  Sex: Male

DRUGS (3)
  1. SUBOXONE [Suspect]
     Indication: DRUG DEPENDENCE
     Route: 060
     Dates: start: 20110901
  2. SUBOXONE [Suspect]
     Route: 060
     Dates: start: 20100101, end: 20110901
  3. SUBOXONE [Suspect]
     Route: 060
     Dates: end: 20100101

REACTIONS (2)
  - ABNORMAL BEHAVIOUR [None]
  - DRUG DEPENDENCE [None]
